FAERS Safety Report 9429180 (Version 2)
Quarter: 2013Q3

REPORT INFORMATION
  Report Type: Spontaneous
  Country: US (occurrence: US)
  Receive Date: 20130730
  Receipt Date: 20130822
  Transmission Date: 20140515
  Serious: Yes (Other)
  Sender: FDA-Public Use
  Company Number: US-BAYER-2013-090430

PATIENT
  Age: 52 Year
  Sex: Female

DRUGS (6)
  1. SAFYRAL [Suspect]
     Dosage: UNK
     Dates: start: 201103, end: 201108
  2. SAFYRAL [Suspect]
     Dosage: UNK
     Dates: start: 200509, end: 200808
  3. YASMIN [Suspect]
     Dosage: UNK
     Dates: start: 200509, end: 200808
  4. YASMIN [Suspect]
     Dosage: UNK
     Dates: start: 201103, end: 201108
  5. OCELLA [Suspect]
     Dosage: UNK
     Dates: start: 200809, end: 201011
  6. ALPRAZOLAM [Concomitant]
     Dosage: 0.5 MG, UNK
     Route: 048
     Dates: start: 20110803

REACTIONS (1)
  - Deep vein thrombosis [None]
